FAERS Safety Report 21181038 (Version 1)
Quarter: 2022Q3

REPORT INFORMATION
  Report Type: Spontaneous
  Country: US (occurrence: US)
  Receive Date: 20220806
  Receipt Date: 20220806
  Transmission Date: 20221027
  Serious: No
  Sender: FDA-Public Use
  Company Number: US-SA-SAC20220729000135

PATIENT
  Age: 60 Year
  Sex: Female

DRUGS (10)
  1. DUPIXENT [Suspect]
     Active Substance: DUPILUMAB
     Indication: Dermatitis atopic
     Dosage: 300 MG, QOW
     Route: 058
  2. PARAFFIN [Concomitant]
     Active Substance: PARAFFIN
  3. DESOXIMETASONE [Concomitant]
     Active Substance: DESOXIMETASONE
  4. SULFAMETHOXAZOLE [Concomitant]
     Active Substance: SULFAMETHOXAZOLE
  5. ALBUTEROL SULFATE [Concomitant]
     Active Substance: ALBUTEROL SULFATE
  6. ASMANEX [Concomitant]
     Active Substance: MOMETASONE FUROATE
  7. ADVIL [Concomitant]
     Active Substance: IBUPROFEN
  8. TYLENOL [Concomitant]
     Active Substance: ACETAMINOPHEN
  9. VITAMIN D3 [Concomitant]
     Active Substance: CHOLECALCIFEROL
  10. REFRESH CLASSIC LUBRICANT EYE DROPS [Concomitant]

REACTIONS (2)
  - Illness [Unknown]
  - Suspected COVID-19 [Unknown]
